FAERS Safety Report 12697749 (Version 3)
Quarter: 2016Q3

REPORT INFORMATION
  Report Type: Spontaneous
  Country: JP (occurrence: JP)
  Receive Date: 20160830
  Receipt Date: 20160923
  Transmission Date: 20161109
  Serious: Yes (Hospitalization, Other)
  Sender: FDA-Public Use
  Company Number: ALJP2016JP001212

PATIENT
  Age: 16 Year
  Sex: Female

DRUGS (6)
  1. TARIVID [Concomitant]
     Active Substance: OFLOXACIN
     Indication: KERATITIS BACTERIAL
     Dosage: UNK
     Route: 003
  2. TIENAM [Concomitant]
     Active Substance: CILASTATIN SODIUM\IMIPENEM
     Indication: KERATITIS BACTERIAL
     Dosage: UNK
     Route: 041
  3. SANTEMYCIN [Concomitant]
     Indication: KERATITIS BACTERIAL
     Dosage: UNK GTT, UNK
     Route: 047
  4. MYDRIN P [Concomitant]
     Active Substance: PHENYLEPHRINE HYDROCHLORIDE\TROPICAMIDE
     Indication: KERATITIS BACTERIAL
     Dosage: UNK GTT, UNK
     Route: 047
  5. VEGAMOX OPHTHALMIC SOLUTION 0.5% [Suspect]
     Active Substance: MOXIFLOXACIN HYDROCHLORIDE
     Indication: KERATITIS BACTERIAL
     Dosage: 1 GTT, TID
     Route: 047
  6. BESTRON [Concomitant]
     Indication: KERATITIS BACTERIAL
     Dosage: 1 TO 2 GTT, QID
     Route: 047

REACTIONS (1)
  - Drug ineffective [Recovering/Resolving]
